FAERS Safety Report 7938665-X (Version None)
Quarter: 2011Q4

REPORT INFORMATION
  Report Type: 
  Country: None (occurrence: None)
  Receive Date: 20111123
  Receipt Date: 20111121
  Transmission Date: 20120403
  Serious: Yes (Hospitalization)
  Sender: FDA-Public Use
  Company Number: CZ-ROCHE-744949

PATIENT
  Sex: Female

DRUGS (10)
  1. ACIDUM FOLICUM [Concomitant]
  2. BIOMIN H [Concomitant]
  3. VIGANTOL [Concomitant]
  4. GLYBURIDE [Concomitant]
  5. MEDROL [Concomitant]
  6. DICLOFENAC SODIUM [Concomitant]
  7. PROTELOS [Concomitant]
  8. METHOTREXATE [Concomitant]
  9. MABTHERA [Suspect]
     Indication: RHEUMATOID ARTHRITIS
     Route: 065
  10. AMPRILAN H [Concomitant]

REACTIONS (4)
  - BACK PAIN [None]
  - ENTEROCOLITIS [None]
  - OSTEOPOROTIC FRACTURE [None]
  - DIABETES MELLITUS [None]
